FAERS Safety Report 9133360 (Version 2)
Quarter: 2013Q1

REPORT INFORMATION
  Report Type: Spontaneous
  Country: US (occurrence: US)
  Receive Date: 20130301
  Receipt Date: 20130328
  Transmission Date: 20140127
  Serious: Yes (Other)
  Sender: FDA-Public Use
  Company Number: US-PFIZER INC-2013069803

PATIENT
  Age: 75 Year
  Sex: Female
  Weight: 76.64 kg

DRUGS (20)
  1. CHANTIX [Suspect]
     Indication: SMOKING CESSATION THERAPY
     Dosage: 0.5 MG, 1X/DAY
     Route: 048
     Dates: start: 20130217, end: 201302
  2. CHANTIX [Suspect]
     Dosage: 1 MG, 2X/DAY
     Route: 048
     Dates: start: 201302, end: 20130226
  3. CO-Q-10 [Concomitant]
     Dosage: UNK, DAILY
  4. VITAMIN C [Concomitant]
     Dosage: 1000 MG, DAILY
     Route: 048
  5. CHROMIUM [Concomitant]
     Dosage: 200 UG, DAILY
     Route: 048
  6. LEVOCARNITINE [Concomitant]
     Dosage: 500 MG, DAILY
     Route: 048
  7. XALATAN [Concomitant]
     Dosage: 1 GTT, (IN LEFT EYE AT BEDTIME)
     Route: 047
  8. ALEVE [Concomitant]
     Dosage: 220 MG, AS NEEDED (EVERY 12 HOURS)
     Route: 048
  9. PROVENTIL HFA [Concomitant]
     Dosage: UNK, AS NEEDED (INHALE 1 - 2 PUFFS EVERY 6 HOURS)
     Route: 045
  10. ALPHA LIPOIC ACID [Concomitant]
     Dosage: 200 MG, 1X/DAY
     Route: 048
  11. MEGA TAURINE [Concomitant]
     Dosage: 1000 MG, 1X/DAY
     Route: 048
  12. L-CARNITINE [Concomitant]
     Dosage: 500 MG, 1X/DAY
     Route: 048
  13. L-ARGININE [Concomitant]
     Dosage: 1000 MG, 1X/DAY
     Route: 048
  14. L-CYSTEINE [Concomitant]
     Dosage: 500 MG, 1X/DAY
     Route: 048
  15. MSM [Concomitant]
     Dosage: 1000 MG, 2X/DAY
     Route: 048
  16. D-5000 [Concomitant]
     Dosage: 5000 UNIT, 1DF, EVERY OTHER DAY
     Route: 048
  17. VITAMIN D [Concomitant]
     Dosage: 5000 IU, 1X/DAY
     Route: 048
  18. VITAMIN B12 [Concomitant]
     Dosage: 2500 MG, 1X/DAY
     Route: 048
  19. VITAMIN B6 [Concomitant]
     Dosage: 100 MG, DAILY
     Route: 048
  20. SIMVASTATIN [Concomitant]
     Dosage: 10 MG, 1X/DAY
     Route: 048

REACTIONS (9)
  - Otitis media acute [Unknown]
  - Drug hypersensitivity [Unknown]
  - Malaise [Recovering/Resolving]
  - Fatigue [Recovering/Resolving]
  - Feeling abnormal [Recovering/Resolving]
  - Insomnia [Recovering/Resolving]
  - Nocturia [Recovering/Resolving]
  - Asthenia [Recovering/Resolving]
  - Nausea [Recovering/Resolving]
